FAERS Safety Report 5744870-3 (Version None)
Quarter: 2008Q2

REPORT INFORMATION
  Report Type: 
  Country: None (occurrence: None)
  Receive Date: 20080516
  Receipt Date: 20080508
  Transmission Date: 20081010
  Serious: Yes (Hospitalization)
  Sender: FDA-Public Use
  Company Number: CHNY2008GB01213

PATIENT
  Age: 47 Year
  Sex: Female

DRUGS (3)
  1. NICOTINE [Suspect]
     Indication: SMOKING CESSATION THERAPY
     Dosage: 4 MG TIMES A DAY, CHEWED; 10 PIECES OF 2 MG/DAY, CHEWED
  2. DIAZEPAM [Concomitant]
  3. ESCITABLOPRAM (ESCITABLOPRAM) [Concomitant]

REACTIONS (5)
  - ANXIETY [None]
  - BREAST COSMETIC SURGERY [None]
  - INTENTIONAL DRUG MISUSE [None]
  - NICOTINE DEPENDENCE [None]
  - STRESS [None]
